FAERS Safety Report 6720938-X (Version None)
Quarter: 2010Q2

REPORT INFORMATION
  Report Type: 
  Country: None (occurrence: None)
  Receive Date: 20100512
  Receipt Date: 20100429
  Transmission Date: 20101027
  Serious: Yes (Death)
  Sender: FDA-Public Use
  Company Number: US-CELGENEUS-163-20785-10050755

PATIENT

DRUGS (8)
  1. THALOMID [Suspect]
     Indication: PROSTATE CANCER
     Route: 048
  2. BEVACIZUMAB [Suspect]
     Indication: PROSTATE CANCER
     Dosage: 15MG/KL
     Route: 051
  3. DOCETAXEL [Suspect]
     Indication: PROSTATE CANCER
     Route: 065
  4. PREDNISONE [Suspect]
     Indication: PROSTATE CANCER
     Route: 065
  5. ENOXAPARIN SODIUM [Concomitant]
     Indication: THROMBOSIS PROPHYLAXIS
     Dosage: 1MG/KG
     Route: 065
  6. PEGFILGRASTIM [Concomitant]
     Indication: DRUG USE FOR UNKNOWN INDICATION
     Route: 065
  7. ZOLEDRONIC ACID [Concomitant]
     Indication: DRUG USE FOR UNKNOWN INDICATION
     Route: 065
  8. ANDROGEN DEPRIVATION THERAPY [Concomitant]
     Indication: DRUG USE FOR UNKNOWN INDICATION
     Route: 065

REACTIONS (1)
  - ASPIRATION [None]
